FAERS Safety Report 13048213 (Version 1)
Quarter: 2016Q4

REPORT INFORMATION
  Report Type: Spontaneous
  Country: US (occurrence: US)
  Receive Date: 20161220
  Receipt Date: 20161220
  Transmission Date: 20170207
  Serious: No
  Sender: FDA-Public Use
  Company Number: US-BIOMARINAP-US-2015-106427

PATIENT
  Sex: Male

DRUGS (2)
  1. ALDURAZYME [Suspect]
     Active Substance: LARONIDASE
     Indication: MUCOPOLYSACCHARIDOSIS I
     Dosage: .58 MG/KG, UNK
     Route: 041
     Dates: start: 200708
  2. BENADRYL [Suspect]
     Active Substance: DIPHENHYDRAMINE HYDROCHLORIDE
     Indication: PRODUCT USED FOR UNKNOWN INDICATION
     Dosage: UNK
     Route: 065
     Dates: start: 201510

REACTIONS (8)
  - Rash [Recovered/Resolved]
  - Feeling abnormal [Unknown]
  - Injection site erythema [Unknown]
  - Injection site mass [Unknown]
  - Injection site urticaria [Unknown]
  - Hypertension [Unknown]
  - Pyrexia [Unknown]
  - Fatigue [Unknown]
